FAERS Safety Report 5912970-0 (Version None)
Quarter: 2008Q4

REPORT INFORMATION
  Report Type: 
  Country: None (occurrence: None)
  Receive Date: 20081008
  Receipt Date: 20080926
  Transmission Date: 20090506
  Serious: Yes (Other)
  Sender: FDA-Public Use
  Company Number: JP-PFIZER INC-2008076343

PATIENT
  Sex: Male
  Weight: 45 kg

DRUGS (1)
  1. CHANTIX [Suspect]
     Indication: EX-TOBACCO USER
     Dosage: DAILY DOSE:2MG
     Route: 048
     Dates: start: 20080804, end: 20080905

REACTIONS (1)
  - INTESTINAL OBSTRUCTION [None]
